FAERS Safety Report 12238283 (Version 1)
Quarter: 2016Q2

REPORT INFORMATION
  Report Type: Spontaneous
  Country: GB (occurrence: GB)
  Receive Date: 20160405
  Receipt Date: 20160405
  Transmission Date: 20160815
  Serious: Yes (Life-Threatening, Hospitalization)
  Sender: FDA-Public Use
  Company Number: GB-ABBVIE-16P-167-1597309-00

PATIENT
  Age: 61 Year
  Sex: Female

DRUGS (3)
  1. VIEKIRAX [Suspect]
     Active Substance: OMBITASVIR\PARITAPREVIR\RITONAVIR
     Indication: HEPATITIS C
     Dosage: 2AD/OMBITAZVIR12.5MG,PARITAPREVIR75MG,RITONAVIR50MG
     Route: 048
     Dates: start: 20151208, end: 20160302
  2. EXVIERA [Suspect]
     Active Substance: DASABUVIR
     Indication: HEPATITIS C
     Dosage: DASABUVIR 250
     Route: 048
     Dates: start: 20151208, end: 20160302
  3. RIBAVIRIN. [Suspect]
     Active Substance: RIBAVIRIN
     Indication: HEPATITIS C
     Route: 065
     Dates: start: 20151208, end: 20160302

REACTIONS (1)
  - Pneumonia [Not Recovered/Not Resolved]

NARRATIVE: CASE EVENT DATE: 20160309
